FAERS Safety Report 9870306 (Version 1)
Quarter: 2014Q1

REPORT INFORMATION
  Report Type: Spontaneous
  Country: US (occurrence: US)
  Receive Date: 20140205
  Receipt Date: 20140205
  Transmission Date: 20141002
  Serious: No
  Sender: FDA-Public Use
  Company Number: US-009507513-1402USA001987

PATIENT
  Age: 84 Year
  Sex: Female

DRUGS (1)
  1. OXYTROL FOR WOMEN [Suspect]
     Indication: INCONTINENCE
     Dosage: UNK, Q4D
     Route: 062
     Dates: start: 20131019

REACTIONS (3)
  - Pain [Unknown]
  - Erythema [Unknown]
  - Product adhesion issue [Unknown]
